FAERS Safety Report 6229287-X (Version None)
Quarter: 2009Q2

REPORT INFORMATION
  Report Type: 
  Country: None (occurrence: None)
  Receive Date: 20090601
  Receipt Date: 20081104
  Transmission Date: 20091009
  Serious: Yes (Hospitalization)
  Sender: FDA-Public Use
  Company Number: US200810002748

PATIENT
  Age: 55 Year
  Sex: Male
  Weight: 101.1 kg

DRUGS (6)
  1. BYETTA [Suspect]
     Indication: TYPE 2 DIABETES MELLITUS
     Dosage: 5 UG, 2/D, SUBCUTANEOUS, 10 UG, SUBCUTANEOUS
     Route: 058
     Dates: start: 20080301
  2. BYETTA [Suspect]
     Indication: TYPE 2 DIABETES MELLITUS
     Dosage: 5 UG, 2/D, SUBCUTANEOUS, 10 UG, SUBCUTANEOUS
     Route: 058
     Dates: start: 20080401
  3. EXENATIDE 10MCG PEN, DISPOSABLE DEVICE (EXENATIDE PEN) PEN, DISPOSABLE [Concomitant]
  4. PLAVIX [Concomitant]
  5. METOPROLOL SUCCINATE [Concomitant]
  6. LISINOPRIL [Concomitant]

REACTIONS (6)
  - DYSPHONIA [None]
  - OEDEMA PERIPHERAL [None]
  - PHARYNGEAL OEDEMA [None]
  - PRURITUS GENITAL [None]
  - SCROTAL SWELLING [None]
  - SWOLLEN TONGUE [None]
